FAERS Safety Report 4839958-5 (Version None)
Quarter: 2005Q4

REPORT INFORMATION
  Report Type: 
  Country: None (occurrence: None)
  Receive Date: 20051129
  Receipt Date: 20050906
  Transmission Date: 20060501
  Serious: Yes (Other)
  Sender: FDA-Public Use
  Company Number: PHEH2005US09980

PATIENT
  Age: 64 Year
  Sex: Female
  Weight: 64.399 kg

DRUGS (1)
  1. ZOLEDRONATE [Suspect]
     Indication: METASTASES TO BONE
     Dosage: 4 MG EVERY MONTH
     Route: 042
     Dates: start: 20050318, end: 20050608

REACTIONS (5)
  - BONE LESION [None]
  - JAW DISORDER [None]
  - LOCAL SWELLING [None]
  - ORAL PAIN [None]
  - PAIN IN JAW [None]
